FAERS Safety Report 19607477 (Version 1)
Quarter: 2021Q3

REPORT INFORMATION
  Report Type: Spontaneous
  Country: US (occurrence: US)
  Receive Date: 20210726
  Receipt Date: 20210726
  Transmission Date: 20211014
  Serious: No
  Sender: FDA-Public Use
  Company Number: US-JIANGSU HENGRUI MEDICINE CO., LTD.-2114254

PATIENT
  Age: 10 Year
  Sex: Male

DRUGS (7)
  1. VINORELBINE [Suspect]
     Active Substance: VINORELBINE TARTRATE
     Dates: start: 20201110
  2. CYCLOPHOSPHAMIDE FOR INJECTION USP, 500 MG, 1 G AND 2 G PER SINGLE?DOS [Suspect]
     Active Substance: CYCLOPHOSPHAMIDE
     Indication: EMBRYONAL RHABDOMYOSARCOMA
  3. DOXORUBICIN [Suspect]
     Active Substance: DOXORUBICIN
  4. TEMSIROLIMUS. [Suspect]
     Active Substance: TEMSIROLIMUS
  5. VINCRISTINE [Suspect]
     Active Substance: VINCRISTINE
     Dates: start: 20201208
  6. IRINOTECAN [Suspect]
     Active Substance: IRINOTECAN
     Dates: start: 20201208
  7. TEMOZOLOMIDE. [Suspect]
     Active Substance: TEMOZOLOMIDE
     Dates: start: 20201208

REACTIONS (3)
  - Neoplasm progression [Unknown]
  - Product use in unapproved indication [Unknown]
  - VIth nerve disorder [Unknown]
